FAERS Safety Report 9693463 (Version 1)
Quarter: 2013Q4

REPORT INFORMATION
  Report Type: Spontaneous
  Country: DE (occurrence: DE)
  Receive Date: 20131118
  Receipt Date: 20131118
  Transmission Date: 20140711
  Serious: Yes (Other)
  Sender: FDA-Public Use
  Company Number: DE-PFIZER INC-2013324404

PATIENT
  Sex: Female

DRUGS (7)
  1. RAMILICH [Suspect]
     Indication: HYPERTENSION
     Dosage: UNK
     Route: 048
  2. AFINITOR [Suspect]
     Indication: BREAST CANCER METASTATIC
     Dosage: 10 MG, DAILY
     Route: 048
     Dates: start: 20130815, end: 20130830
  3. AFINITOR [Suspect]
     Dosage: 5 MG, DAILY
     Route: 048
     Dates: start: 20130831, end: 20130925
  4. EXEMESTANE [Concomitant]
     Dosage: UNK
     Dates: start: 20130815
  5. TRASTUZUMAB [Concomitant]
     Dosage: UNK
     Dates: start: 20080116
  6. PAMIDRONATE DISODIUM [Concomitant]
     Dosage: UNK
     Dates: start: 20080114
  7. PAMIDRONATE DISODIUM [Concomitant]
     Dosage: UNK
     Dates: start: 20130904

REACTIONS (4)
  - Musculoskeletal discomfort [Recovered/Resolved]
  - Arthropod sting [Recovered/Resolved]
  - Swelling face [Recovered/Resolved]
  - Swollen tongue [Not Recovered/Not Resolved]
